FAERS Safety Report 25741537 (Version 2)
Quarter: 2025Q3

REPORT INFORMATION
  Report Type: Report from Study
  Country: KR (occurrence: KR)
  Receive Date: 20250829
  Receipt Date: 20250910
  Transmission Date: 20251021
  Serious: Yes (Hospitalization)
  Sender: ABBVIE
  Company Number: KR-ABBVIE-6432866

PATIENT
  Age: 67 Year
  Sex: Female
  Weight: 65 kg

DRUGS (16)
  1. RINVOQ [Suspect]
     Active Substance: UPADACITINIB
     Indication: Rheumatoid arthritis
     Dosage: FORM STRENGTH: 15 MILLIGRAM
     Route: 048
     Dates: start: 20250725
  2. XYZAL [Concomitant]
     Active Substance: LEVOCETIRIZINE DIHYDROCHLORIDE
     Indication: Urticaria chronic
     Dosage: 5 MG
     Route: 048
     Dates: start: 20250307
  3. Dukarb [Concomitant]
     Indication: Hypertension
     Route: 048
     Dates: start: 20230703, end: 20250825
  4. Dicamax d plus [Concomitant]
     Indication: Osteopenia
     Route: 048
     Dates: start: 20240510
  5. METHOTREXATE [Concomitant]
     Active Substance: METHOTREXATE
     Indication: Rheumatoid arthritis
     Dates: start: 20220831, end: 20220925
  6. METHOTREXATE [Concomitant]
     Active Substance: METHOTREXATE
     Indication: Rheumatoid arthritis
     Dates: start: 20220926
  7. METHYLPREDNISOLONE [Concomitant]
     Active Substance: METHYLPREDNISOLONE
     Indication: Rheumatoid arthritis
     Dates: start: 20240809
  8. EZETIMIBE\ROSUVASTATIN [Concomitant]
     Active Substance: EZETIMIBE\ROSUVASTATIN
     Indication: Hyperlipidaemia
     Dosage: 10/20MG
     Route: 048
     Dates: start: 20241118
  9. INFLIXIMAB [Concomitant]
     Active Substance: INFLIXIMAB
     Indication: Rheumatoid arthritis
  10. Fexuclue [Concomitant]
     Indication: Gastrointestinal disorder prophylaxis
     Dosage: 40 MG
     Route: 048
     Dates: start: 20230113
  11. ALLEGRA [Concomitant]
     Active Substance: FEXOFENADINE HYDROCHLORIDE
     Indication: Urticaria chronic
     Dosage: 180 MG
     Route: 048
     Dates: start: 20250307
  12. Plavitor [Concomitant]
     Indication: Acute myocardial infarction
     Route: 048
     Dates: start: 20230703
  13. CELECOXIB [Concomitant]
     Active Substance: CELECOXIB
     Indication: Rheumatoid arthritis
     Dates: start: 20220831
  14. Sinil folic acid [Concomitant]
     Indication: Prophylaxis
     Dosage: 1 MG
     Route: 048
     Dates: start: 20220831
  15. Dichlozid [Concomitant]
     Indication: Hypertension
     Dosage: 25 MG
     Route: 048
     Dates: start: 20250826
  16. Kanarb [Concomitant]
     Indication: Hypertension
     Dosage: 60 MG
     Route: 048
     Dates: start: 20250825

REACTIONS (1)
  - Oedema peripheral [Not Recovered/Not Resolved]

NARRATIVE: CASE EVENT DATE: 20250822
